FAERS Safety Report 9052280 (Version 2)
Quarter: 2013Q1

REPORT INFORMATION
  Report Type: Spontaneous
  Country: JP (occurrence: JP)
  Receive Date: 20130206
  Receipt Date: 20130226
  Transmission Date: 20140127
  Serious: Yes (Other)
  Sender: FDA-Public Use
  Company Number: JP-PFIZER INC-2013047946

PATIENT
  Age: 70 Year
  Sex: Female

DRUGS (4)
  1. CADUET [Suspect]
     Dosage: UNK
     Route: 048
     Dates: start: 201005
  2. GASTER [Concomitant]
     Dosage: UNK
  3. PREMINENT [Concomitant]
     Dosage: UNK
  4. CADUET [Concomitant]
     Dosage: UNK

REACTIONS (1)
  - Gamma-glutamyltransferase increased [Not Recovered/Not Resolved]
